FAERS Safety Report 7198716-X (Version None)
Quarter: 2010Q4

REPORT INFORMATION
  Report Type: 
  Country: None (occurrence: None)
  Receive Date: 20101227
  Receipt Date: 20101216
  Transmission Date: 20110411
  Serious: Yes (Other)
  Sender: FDA-Public Use
  Company Number: US-JNJFOC-20101207561

PATIENT
  Sex: Female
  Weight: 62.6 kg

DRUGS (8)
  1. ELMIRON [Suspect]
     Indication: CYSTITIS INTERSTITIAL
     Route: 048
  2. ARIMIDEX [Concomitant]
     Indication: CHEMOTHERAPY
     Route: 048
  3. MIACALCIN [Concomitant]
     Indication: BONE DENSITY ABNORMAL
     Dosage: ONE SPRAY IN ONE NASAL
     Route: 045
  4. MEFLOQUINE HCL [Concomitant]
     Indication: MALARIA PROPHYLAXIS
     Dosage: MALARIA PROPHYLAXIS FOR TRAVEL
     Route: 048
  5. MULTI-VITAMINS [Concomitant]
     Indication: MEDICAL DIET
     Route: 048
  6. CALCIUM [Concomitant]
     Indication: MEDICAL DIET
     Route: 048
  7. MAGNESIUM [Concomitant]
     Indication: MEDICAL DIET
     Route: 048
  8. LAXATIVES [Concomitant]
     Indication: CONSTIPATION
     Route: 048

REACTIONS (5)
  - BLOOD URINE PRESENT [None]
  - INAPPROPRIATE SCHEDULE OF DRUG ADMINISTRATION [None]
  - NAUSEA [None]
  - POLLAKIURIA [None]
  - URINE ODOUR ABNORMAL [None]
